FAERS Safety Report 6831569-5 (Version None)
Quarter: 2010Q3

REPORT INFORMATION
  Report Type: 
  Country: None (occurrence: None)
  Receive Date: 20100712
  Receipt Date: 20100629
  Transmission Date: 20110219
  Serious: Yes (Hospitalization)
  Sender: FDA-Public Use
  Company Number: PHHY2010TW23999

PATIENT
  Sex: Male

DRUGS (2)
  1. EXJADE [Suspect]
     Dosage: 500 MG, UNK
     Route: 048
  2. EXJADE [Suspect]
     Dosage: 750 MG, UNK

REACTIONS (1)
  - PURULENT DISCHARGE [None]
